FAERS Safety Report 5655940-2 (Version None)
Quarter: 2008Q1

REPORT INFORMATION
  Report Type: 
  Country: None (occurrence: None)
  Receive Date: 20080307
  Receipt Date: 20080304
  Transmission Date: 20080703
  Serious: Yes (Hospitalization)
  Sender: FDA-Public Use
  Company Number: US-BOEHRINGER INGELHEIM GMBH, GERMANY-2008-BP-02533BP

PATIENT
  Sex: Female
  Weight: 105 kg

DRUGS (9)
  1. SPIRIVA [Suspect]
     Indication: CHRONIC OBSTRUCTIVE PULMONARY DISEASE
     Route: 055
  2. COMBIVENT [Concomitant]
  3. ADVAIR DISKUS 100/50 [Concomitant]
  4. GABAPENTIN [Concomitant]
  5. AMITRIPTYLINE HCL [Concomitant]
  6. ZOLOFT [Concomitant]
  7. WARFARIN SODIUM [Concomitant]
  8. LORAZEPAM [Concomitant]
  9. IRON SUPPLEMENTS [Concomitant]

REACTIONS (4)
  - BRONCHOSPASM PARADOXICAL [None]
  - CHRONIC OBSTRUCTIVE PULMONARY DISEASE [None]
  - DYSPNOEA [None]
  - WHEEZING [None]
